FAERS Safety Report 24850448 (Version 5)
Quarter: 2025Q2

REPORT INFORMATION
  Report Type: Spontaneous
  Country: CN (occurrence: CN)
  Receive Date: 20250116
  Receipt Date: 20250429
  Transmission Date: 20250716
  Serious: Yes (Hospitalization, Other)
  Sender: PFIZER
  Company Number: CN-PFIZER INC-PV202400094086

PATIENT
  Age: 53 Year
  Sex: Male

DRUGS (50)
  1. XYNTHA [Suspect]
     Active Substance: MOROCTOCOG ALFA
     Indication: Haemophilia
     Route: 042
     Dates: start: 20240507
  2. XYNTHA [Suspect]
     Active Substance: MOROCTOCOG ALFA
     Route: 040
     Dates: start: 20240508
  3. XYNTHA [Suspect]
     Active Substance: MOROCTOCOG ALFA
     Route: 040
     Dates: start: 20240516
  4. XYNTHA [Suspect]
     Active Substance: MOROCTOCOG ALFA
     Route: 040
     Dates: start: 20240516
  5. XYNTHA [Suspect]
     Active Substance: MOROCTOCOG ALFA
     Route: 040
     Dates: start: 20240516
  6. XYNTHA [Suspect]
     Active Substance: MOROCTOCOG ALFA
     Route: 040
     Dates: start: 20240517
  7. XYNTHA [Suspect]
     Active Substance: MOROCTOCOG ALFA
     Route: 040
     Dates: start: 20240517
  8. XYNTHA [Suspect]
     Active Substance: MOROCTOCOG ALFA
     Dosage: 2500IUQD
     Route: 040
     Dates: start: 20240517
  9. XYNTHA [Suspect]
     Active Substance: MOROCTOCOG ALFA
     Dosage: 2500IUQD
     Route: 040
     Dates: start: 20240517
  10. XYNTHA [Suspect]
     Active Substance: MOROCTOCOG ALFA
     Dosage: 2000IUQD
     Route: 040
     Dates: start: 20240519
  11. XYNTHA [Suspect]
     Active Substance: MOROCTOCOG ALFA
     Dosage: 2000IUQD
     Route: 040
     Dates: start: 20240519
  12. XYNTHA [Suspect]
     Active Substance: MOROCTOCOG ALFA
     Route: 040
     Dates: start: 20240520
  13. XYNTHA [Suspect]
     Active Substance: MOROCTOCOG ALFA
     Route: 040
     Dates: start: 20240521
  14. XYNTHA [Suspect]
     Active Substance: MOROCTOCOG ALFA
     Route: 040
     Dates: start: 20240521
  15. XYNTHA [Suspect]
     Active Substance: MOROCTOCOG ALFA
     Route: 040
     Dates: start: 20240522
  16. XYNTHA [Suspect]
     Active Substance: MOROCTOCOG ALFA
     Route: 040
     Dates: start: 20240522
  17. XYNTHA [Suspect]
     Active Substance: MOROCTOCOG ALFA
     Route: 040
     Dates: start: 20240522
  18. XYNTHA [Suspect]
     Active Substance: MOROCTOCOG ALFA
     Route: 040
     Dates: start: 20240523
  19. XYNTHA [Suspect]
     Active Substance: MOROCTOCOG ALFA
     Route: 040
     Dates: start: 20240523
  20. XYNTHA [Suspect]
     Active Substance: MOROCTOCOG ALFA
     Route: 040
     Dates: start: 20240524
  21. XYNTHA [Suspect]
     Active Substance: MOROCTOCOG ALFA
     Route: 040
     Dates: start: 20240524
  22. XYNTHA [Suspect]
     Active Substance: MOROCTOCOG ALFA
     Route: 040
     Dates: start: 20240525
  23. XYNTHA [Suspect]
     Active Substance: MOROCTOCOG ALFA
     Route: 040
     Dates: start: 20240525
  24. XYNTHA [Suspect]
     Active Substance: MOROCTOCOG ALFA
     Route: 040
     Dates: start: 20240526
  25. XYNTHA [Suspect]
     Active Substance: MOROCTOCOG ALFA
     Route: 040
     Dates: start: 20240526
  26. XYNTHA [Suspect]
     Active Substance: MOROCTOCOG ALFA
     Route: 040
     Dates: start: 20240527
  27. XYNTHA [Suspect]
     Active Substance: MOROCTOCOG ALFA
     Route: 040
     Dates: start: 20240527
  28. XYNTHA [Suspect]
     Active Substance: MOROCTOCOG ALFA
     Route: 040
     Dates: start: 20240528
  29. XYNTHA [Suspect]
     Active Substance: MOROCTOCOG ALFA
     Route: 040
     Dates: start: 20240528
  30. XYNTHA [Suspect]
     Active Substance: MOROCTOCOG ALFA
     Route: 040
     Dates: start: 20240529
  31. XYNTHA [Suspect]
     Active Substance: MOROCTOCOG ALFA
     Dosage: 1000IUQW
     Route: 042
     Dates: start: 20240529
  32. XYNTHA [Suspect]
     Active Substance: MOROCTOCOG ALFA
     Dosage: 1000IUQW
     Route: 042
     Dates: start: 20240613
  33. XYNTHA [Suspect]
     Active Substance: MOROCTOCOG ALFA
     Dosage: 1000IUQW
     Route: 042
     Dates: start: 20240619
  34. XYNTHA [Suspect]
     Active Substance: MOROCTOCOG ALFA
     Route: 040
     Dates: start: 20240702
  35. XYNTHA [Suspect]
     Active Substance: MOROCTOCOG ALFA
     Route: 040
     Dates: start: 20240703
  36. XYNTHA [Suspect]
     Active Substance: MOROCTOCOG ALFA
     Route: 040
     Dates: start: 20240704
  37. XYNTHA [Suspect]
     Active Substance: MOROCTOCOG ALFA
     Route: 040
     Dates: start: 20240705
  38. XYNTHA [Suspect]
     Active Substance: MOROCTOCOG ALFA
     Route: 040
     Dates: start: 20240705
  39. XYNTHA [Suspect]
     Active Substance: MOROCTOCOG ALFA
     Route: 040
     Dates: start: 20240706
  40. XYNTHA [Suspect]
     Active Substance: MOROCTOCOG ALFA
     Route: 042
     Dates: start: 20240706
  41. XYNTHA [Suspect]
     Active Substance: MOROCTOCOG ALFA
     Route: 040
     Dates: start: 20240707
  42. XYNTHA [Suspect]
     Active Substance: MOROCTOCOG ALFA
     Route: 040
     Dates: start: 20240707
  43. XYNTHA [Suspect]
     Active Substance: MOROCTOCOG ALFA
     Route: 040
     Dates: start: 20240708
  44. XYNTHA [Suspect]
     Active Substance: MOROCTOCOG ALFA
     Dosage: 2500IU Q12H
     Route: 040
     Dates: start: 20240708
  45. XYNTHA [Suspect]
     Active Substance: MOROCTOCOG ALFA
     Dosage: 1000IUQW
     Route: 042
     Dates: start: 20240717
  46. XYNTHA [Suspect]
     Active Substance: MOROCTOCOG ALFA
     Dosage: 1000 IU, QW
     Route: 042
     Dates: start: 20240724
  47. XYNTHA [Suspect]
     Active Substance: MOROCTOCOG ALFA
     Dosage: 1000 IU, QW
     Route: 042
     Dates: start: 20241016
  48. XYNTHA [Suspect]
     Active Substance: MOROCTOCOG ALFA
     Route: 040
     Dates: start: 20241205
  49. XYNTHA [Suspect]
     Active Substance: MOROCTOCOG ALFA
     Route: 040
     Dates: start: 20241207
  50. XYNTHA [Suspect]
     Active Substance: MOROCTOCOG ALFA
     Route: 040
     Dates: start: 20241209

REACTIONS (6)
  - Factor VIII inhibition [Not Recovered/Not Resolved]
  - Post procedural haemorrhage [Recovered/Resolved]
  - Coagulation factor level abnormal [Not Recovered/Not Resolved]
  - Drug ineffective [Unknown]
  - Haematuria [Recovered/Resolved]
  - Ureteral stent insertion [Unknown]

NARRATIVE: CASE EVENT DATE: 20240704
